FAERS Safety Report 10405730 (Version 1)
Quarter: 2014Q3

REPORT INFORMATION
  Report Type: Report from Study
  Country: GT (occurrence: GT)
  Receive Date: 20140825
  Receipt Date: 20140825
  Transmission Date: 20150326
  Serious: Yes (Other)
  Sender: FDA-Public Use
  Company Number: PHHY2014GT105729

PATIENT
  Sex: Female

DRUGS (1)
  1. GLIVEC [Suspect]
     Active Substance: IMATINIB MESYLATE
     Indication: CHRONIC MYELOID LEUKAEMIA
     Dosage: 400 MG, UNK

REACTIONS (2)
  - Decreased immune responsiveness [Recovering/Resolving]
  - Urinary tract infection [Recovering/Resolving]
